FAERS Safety Report 6476045-7 (Version None)
Quarter: 2009Q4

REPORT INFORMATION
  Report Type: 
  Country: None (occurrence: None)
  Receive Date: 20091204
  Receipt Date: 20090112
  Transmission Date: 20100525
  Serious: No
  Sender: FDA-Public Use
  Company Number: US-AMGEN-KDL327957

PATIENT
  Sex: Female

DRUGS (3)
  1. ENBREL [Suspect]
     Indication: PSORIATIC ARTHROPATHY
     Route: 058
     Dates: start: 20081115
  2. ENBREL [Suspect]
     Indication: PSORIASIS
  3. SORIATANE [Concomitant]
     Route: 048

REACTIONS (1)
  - DRUG INEFFECTIVE [None]
